FAERS Safety Report 6148936-8 (Version None)
Quarter: 2009Q2

REPORT INFORMATION
  Report Type: 
  Country: None (occurrence: None)
  Receive Date: 20090406
  Receipt Date: 20090324
  Transmission Date: 20091009
  Serious: Yes (Other)
  Sender: FDA-Public Use
  Company Number: OSCN-NO-0903L-0175

PATIENT

DRUGS (1)
  1. OMNISCAN [Suspect]
     Dosage: SINGLE DOSE

REACTIONS (2)
  - DIALYSIS [None]
  - NEPHROGENIC SYSTEMIC FIBROSIS [None]
